FAERS Safety Report 7131398-1 (Version None)
Quarter: 2010Q4

REPORT INFORMATION
  Report Type: 
  Country: None (occurrence: None)
  Receive Date: 20101201
  Receipt Date: 20101124
  Transmission Date: 20110411
  Serious: Yes (Other)
  Sender: FDA-Public Use
  Company Number: JP-PFIZER INC-2010156473

PATIENT
  Age: 61 Year
  Sex: Female
  Weight: 44.2 kg

DRUGS (1)
  1. PREMARIN [Suspect]
     Indication: MENOPAUSAL SYMPTOMS

REACTIONS (2)
  - HEPATIC STEATOSIS [None]
  - PORPHYRIA NON-ACUTE [None]
